FAERS Safety Report 10247698 (Version 1)
Quarter: 2014Q2

REPORT INFORMATION
  Report Type: Spontaneous
  Country: US (occurrence: US)
  Receive Date: 20140619
  Receipt Date: 20140619
  Transmission Date: 20141212
  Serious: No
  Sender: FDA-Public Use
  Company Number: US-B.I. PHARMACEUTICALS,INC./RIDGEFIELD-2014-BI-26470BP

PATIENT
  Sex: Female
  Weight: 66 kg

DRUGS (9)
  1. PRADAXA [Suspect]
     Indication: PULMONARY EMBOLISM
     Dosage: 300 MG
     Route: 048
     Dates: start: 2013
  2. LANTUS [Concomitant]
     Indication: DIABETES MELLITUS
     Dosage: FORMULATION:  SUBCUTANEOUS; DOSE PER APPLICATION: 20 UNITS; DAILY DOSE: 20 UNITS
     Route: 058
     Dates: start: 2006
  3. GLIPIZIDE [Concomitant]
     Indication: DIABETES MELLITUS
     Dosage: 10 MG
     Route: 048
     Dates: start: 2006
  4. DIOVAN [Concomitant]
     Indication: HYPERTENSION
     Dosage: 160 MG
     Route: 048
  5. SYNTHROID [Concomitant]
     Indication: HYPOTHYROIDISM
     Dosage: 75 MCG
     Route: 048
     Dates: start: 2002
  6. PANTOPRAZOLE [Concomitant]
     Indication: GASTROOESOPHAGEAL REFLUX DISEASE
     Dosage: 40 MG
     Route: 048
  7. NEURONTIN [Concomitant]
     Indication: HERPES ZOSTER
     Dosage: 400 MG
     Route: 048
     Dates: start: 2004
  8. CALCIUM [Concomitant]
     Indication: OSTEOARTHRITIS
     Dosage: 600 MG
     Route: 048
     Dates: start: 2008
  9. LIDODERM [Concomitant]
     Indication: HERPES ZOSTER
     Dosage: FORMULATION: PATCH
     Route: 061

REACTIONS (4)
  - Contusion [Not Recovered/Not Resolved]
  - Pruritus [Not Recovered/Not Resolved]
  - Haematoma [Not Recovered/Not Resolved]
  - Off label use [Unknown]
